FAERS Safety Report 8226007-4 (Version None)
Quarter: 2012Q1

REPORT INFORMATION
  Report Type: 
  Country: None (occurrence: None)
  Receive Date: 20120321
  Receipt Date: 20120319
  Transmission Date: 20120608
  Serious: No
  Sender: FDA-Public Use
  Company Number: US-PFIZER INC-2012072569

PATIENT
  Sex: Male
  Weight: 90.703 kg

DRUGS (5)
  1. GABAPENTIN [Concomitant]
     Indication: PAIN
     Dosage: 600 MG, 4X/DAY
  2. DILANTIN-125 [Suspect]
     Indication: GRAND MAL CONVULSION
     Dosage: 100 MG, 4X/DAY
     Dates: start: 19840101
  3. COUMADIN [Concomitant]
     Indication: ANTICOAGULANT THERAPY
     Dosage: 0.5 MG, DAILY
  4. TRAMADOL [Concomitant]
     Indication: PAIN
     Dosage: 100 MG, 3-4 TIMES A DAY
  5. LIPITOR [Concomitant]
     Indication: BLOOD CHOLESTEROL INCREASED
     Dosage: 40 MG, DAILY

REACTIONS (1)
  - ANXIETY [None]
